FAERS Safety Report 5212529-7 (Version None)
Quarter: 2007Q1

REPORT INFORMATION
  Report Type: 
  Country: None (occurrence: None)
  Receive Date: 20070118
  Receipt Date: 20070108
  Transmission Date: 20070707
  Serious: Yes (Hospitalization)
  Sender: FDA-Public Use
  Company Number: DE-MERCK-0701DEU00023

PATIENT
  Age: 37 Year
  Sex: Male

DRUGS (3)
  1. VYTORIN [Suspect]
     Route: 048
     Dates: start: 20050512
  2. ESOMEPRAZOLE MAGNESIUM [Concomitant]
     Route: 065
  3. METOCLOPRAMIDE HYDROCHLORIDE [Concomitant]
     Route: 065

REACTIONS (6)
  - ALANINE AMINOTRANSFERASE INCREASED [None]
  - ASPARTATE AMINOTRANSFERASE INCREASED [None]
  - FATIGUE [None]
  - GAMMA-GLUTAMYLTRANSFERASE INCREASED [None]
  - HYPERHIDROSIS [None]
  - INFECTION [None]
